FAERS Safety Report 4861810-X (Version None)
Quarter: 2005Q4

REPORT INFORMATION
  Report Type: 
  Country: None (occurrence: None)
  Receive Date: 20051129
  Receipt Date: 20050921
  Transmission Date: 20060501
  Serious: Yes (Hospitalization)
  Sender: FDA-Public Use
  Company Number: CHPA2005US03098

PATIENT
  Age: 52 Year
  Sex: Female
  Weight: 68 kg

DRUGS (6)
  1. NICOTINE [Suspect]
     Indication: SMOKING CESSATION THERAPY
     Dosage: 21 MG, QD, TRANSDERMAL; SEE IMAGE
     Route: 062
     Dates: start: 20050912, end: 20050913
  2. NICOTINE [Suspect]
     Indication: SMOKING CESSATION THERAPY
     Dosage: 21 MG, QD, TRANSDERMAL; SEE IMAGE
     Route: 062
     Dates: start: 20050914, end: 20050914
  3. NICOTINE [Suspect]
     Indication: SMOKING CESSATION THERAPY
     Dosage: 21 MG, QD, TRANSDERMAL; SEE IMAGE
     Route: 062
     Dates: start: 20050915, end: 20050915
  4. ZANTAC [Concomitant]
  5. PREMARIN [Concomitant]
  6. AMBIEN [Concomitant]

REACTIONS (5)
  - BACK PAIN [None]
  - CARDIAC FAILURE CONGESTIVE [None]
  - DYSPNOEA [None]
  - PAINFUL RESPIRATION [None]
  - TREATMENT NONCOMPLIANCE [None]
